FAERS Safety Report 9674536 (Version 1)
Quarter: 2013Q4

REPORT INFORMATION
  Report Type: Spontaneous
  Country: US (occurrence: None)
  Receive Date: 20131105
  Receipt Date: 20131105
  Transmission Date: 20140711
  Serious: Yes (Other)
  Sender: FDA-Public Use
  Company Number: None

PATIENT
  Age: 39 Year
  Sex: Female
  Weight: 52.62 kg

DRUGS (1)
  1. ZONISAMIDE [Suspect]
     Indication: EPILEPSY
     Route: 048

REACTIONS (1)
  - Convulsion [None]
